FAERS Safety Report 17190887 (Version 1)
Quarter: 2019Q4

REPORT INFORMATION
  Report Type: Report from Study
  Country: BR (occurrence: BR)
  Receive Date: 20191223
  Receipt Date: 20191223
  Transmission Date: 20200122
  Serious: Yes (Other)
  Sender: FDA-Public Use
  Company Number: BR-UCBSA-2019040101

PATIENT
  Age: 55 Year
  Sex: Female
  Weight: 39 kg

DRUGS (2)
  1. CERTOLIZUMAB PEGOL RA [Suspect]
     Active Substance: CERTOLIZUMAB PEGOL
     Indication: RHEUMATOID ARTHRITIS
     Dosage: 400 MILLIGRAM, MONTHLY (QM)
     Route: 058
     Dates: start: 20190604, end: 2019
  2. AMOXICILINA [AMOXICILLIN] [Concomitant]
     Indication: SINUSITIS
     Dosage: 500 MILLIGRAM, 3X/DAY (TID)
     Route: 048
     Dates: start: 20190909, end: 20191125

REACTIONS (2)
  - Sinusitis [Recovered/Resolved]
  - Eye allergy [Not Recovered/Not Resolved]

NARRATIVE: CASE EVENT DATE: 20190909
